FAERS Safety Report 5532412-7 (Version None)
Quarter: 2007Q4

REPORT INFORMATION
  Report Type: 
  Country: None (occurrence: None)
  Receive Date: 20071203
  Receipt Date: 20071109
  Transmission Date: 20080405
  Serious: Yes (Other)
  Sender: FDA-Public Use
  Company Number: PFIZER INC-2007096900

PATIENT
  Sex: Female

DRUGS (3)
  1. CHAMPIX [Suspect]
     Indication: SMOKING CESSATION THERAPY
     Route: 048
  2. FOSAMAX [Concomitant]
  3. LIPITOR [Concomitant]

REACTIONS (5)
  - AGEUSIA [None]
  - CONSTIPATION [None]
  - DRY MOUTH [None]
  - MIGRAINE [None]
  - VISUAL DISTURBANCE [None]
